FAERS Safety Report 8388998-0 (Version None)
Quarter: 2012Q2

REPORT INFORMATION
  Report Type: 
  Country: None (occurrence: None)
  Receive Date: 20120528
  Receipt Date: 20120526
  Transmission Date: 20120825
  Serious: No
  Sender: FDA-Public Use
  Company Number: US-PFIZER INC-2012127354

PATIENT
  Sex: Female
  Weight: 103 kg

DRUGS (6)
  1. XANAX [Suspect]
     Indication: DEPRESSION
     Dosage: 0.5 MG, 1X/DAY
     Route: 048
  2. SKELAXIN [Concomitant]
     Dosage: 800 MG, UNK
  3. XANAX [Suspect]
     Dosage: 2 MG, 1X/DAY
     Route: 048
  4. NORTRIPTYLINE [Concomitant]
     Dosage: UNK
  5. XANAX [Suspect]
     Dosage: 1 MG, 1X/DAY
     Route: 048
  6. ZOLOFT [Suspect]
     Indication: DEPRESSION
     Dosage: 100 MG, 1X/DAY
     Route: 048
     Dates: start: 20020101

REACTIONS (2)
  - STRESS [None]
  - DRUG INEFFECTIVE [None]
